FAERS Safety Report 16197229 (Version 1)
Quarter: 2019Q2

REPORT INFORMATION
  Report Type: Spontaneous
  Country: US (occurrence: US)
  Receive Date: 20190412
  Receipt Date: 20190412
  Transmission Date: 20190711
  Serious: Yes (Other)
  Sender: FDA-Public Use
  Company Number: None

PATIENT
  Age: 42 Year
  Sex: Female
  Weight: 105.75 kg

DRUGS (11)
  1. NEUPRO [Suspect]
     Active Substance: ROTIGOTINE
     Indication: RESTLESS LEGS SYNDROME
     Dosage: ?          QUANTITY:1 PATCH(ES);?
     Route: 062
  2. COLESTIPOL [Concomitant]
     Active Substance: COLESTIPOL
  3. METFORMIN [Concomitant]
     Active Substance: METFORMIN HYDROCHLORIDE
  4. VITAMIN D3 [Concomitant]
     Active Substance: CHOLECALCIFEROL
  5. WELLBUTRIN [Concomitant]
     Active Substance: BUPROPION HYDROCHLORIDE
  6. IBUPROFEN. [Concomitant]
     Active Substance: IBUPROFEN
  7. NEUPRO [Concomitant]
     Active Substance: ROTIGOTINE
  8. NAROXEN [Concomitant]
  9. MAGNESIUM [Concomitant]
     Active Substance: MAGNESIUM
  10. GABAPENTIN. [Concomitant]
     Active Substance: GABAPENTIN
  11. ATORVASTATIN [Concomitant]
     Active Substance: ATORVASTATIN

REACTIONS (3)
  - Application site pruritus [None]
  - Application site rash [None]
  - Device adhesion issue [None]

NARRATIVE: CASE EVENT DATE: 20190109
